FAERS Safety Report 12960366 (Version 2)
Quarter: 2016Q4

REPORT INFORMATION
  Report Type: Spontaneous
  Country: US (occurrence: US)
  Receive Date: 20161121
  Receipt Date: 20161229
  Transmission Date: 20170207
  Serious: Yes (Death, Other)
  Sender: FDA-Public Use
  Company Number: US-009507513-0603USA02469

PATIENT
  Sex: Male
  Weight: 92.53 kg

DRUGS (2)
  1. ZOCOR [Suspect]
     Active Substance: SIMVASTATIN
     Indication: HYPERLIPIDAEMIA
     Dosage: 80 MG, HS
     Route: 048
     Dates: start: 20030509
  2. RESTORIL [Suspect]
     Active Substance: TEMAZEPAM
     Indication: SLEEP DISORDER
     Dosage: 15-30 MG, UNK
     Dates: start: 20031231

REACTIONS (14)
  - Adjustment disorder [Unknown]
  - Temperature regulation disorder [Unknown]
  - Insomnia [Unknown]
  - Non-alcoholic fatty liver [Unknown]
  - Chest discomfort [Unknown]
  - Chest pain [Unknown]
  - Retching [Unknown]
  - Completed suicide [Fatal]
  - Mental impairment [Unknown]
  - Cognitive disorder [Unknown]
  - Depressed mood [Unknown]
  - Nausea [Unknown]
  - Sleep disorder [Unknown]
  - Rash [Unknown]

NARRATIVE: CASE EVENT DATE: 200305
